FAERS Safety Report 6111300-1 (Version None)
Quarter: 2009Q1

REPORT INFORMATION
  Report Type: 
  Country: None (occurrence: None)
  Receive Date: 20090309
  Receipt Date: 20090219
  Transmission Date: 20090719
  Serious: Yes (Hospitalization)
  Sender: FDA-Public Use
  Company Number: 8043573

PATIENT
  Age: 68 Year
  Sex: Male

DRUGS (2)
  1. PREDNISOLONE [Suspect]
     Indication: PEMPHIGOID
     Dosage: PO
     Route: 048
  2. PREDNISOLONE [Suspect]
     Indication: SKIN LESION
     Dosage: PO
     Route: 048

REACTIONS (7)
  - ACCIDENTAL EXPOSURE [None]
  - BONE LESION [None]
  - CELLULITIS [None]
  - GRANULOMATOUS LIVER DISEASE [None]
  - JOINT EFFUSION [None]
  - MYCOBACTERIUM MARINUM INFECTION [None]
  - SKIN LESION [None]
